FAERS Safety Report 23663440 (Version 1)
Quarter: 2024Q1

REPORT INFORMATION
  Report Type: Spontaneous
  Country: US (occurrence: US)
  Receive Date: 20240322
  Receipt Date: 20240322
  Transmission Date: 20240410
  Serious: No
  Sender: FDA-Public Use
  Company Number: US-SA-SAC20240318000912

PATIENT
  Sex: Female

DRUGS (1)
  1. TZIELD [Suspect]
     Active Substance: TEPLIZUMAB-MZWV
     Dosage: UNK
     Route: 065
     Dates: start: 202403, end: 202403

REACTIONS (2)
  - Lymphocyte count abnormal [Unknown]
  - Rash [Unknown]

NARRATIVE: CASE EVENT DATE: 20240301
